FAERS Safety Report 13397105 (Version 1)
Quarter: 2017Q2

REPORT INFORMATION
  Report Type: Other
  Country: CA (occurrence: CA)
  Receive Date: 20170403
  Receipt Date: 20170403
  Transmission Date: 20170830
  Serious: Yes (Other)
  Sender: FDA-Public Use
  Company Number: CA-APOTEX-2017AP008988

PATIENT
  Sex: Male

DRUGS (1)
  1. APO-TOLTERODINE [Suspect]
     Active Substance: TOLTERODINE
     Indication: HYPERTONIC BLADDER
     Dosage: UNK
     Route: 048

REACTIONS (5)
  - Fungal infection [Unknown]
  - Penile erythema [Unknown]
  - Penis disorder [Unknown]
  - Penile haemorrhage [Unknown]
  - Skin fissures [Unknown]
